FAERS Safety Report 9012448 (Version 2)
Quarter: 2013Q1

REPORT INFORMATION
  Report Type: Spontaneous
  Country: JP (occurrence: JP)
  Receive Date: 20130114
  Receipt Date: 20130116
  Transmission Date: 20140127
  Serious: Yes (Other)
  Sender: FDA-Public Use
  Company Number: JP-PFIZER INC-2013009430

PATIENT
  Age: 72 Year
  Sex: Male

DRUGS (5)
  1. DOXORUBICIN HCL [Suspect]
     Indication: B-CELL LYMPHOMA
     Dosage: 90 MG, CYCLIC (7 COURSES)
     Dates: end: 1998
  2. ETOPOSIDE [Suspect]
     Indication: B-CELL LYMPHOMA
     Dosage: 75 MG DAILY FOR 2 WEEKS ONCE A MONTH (12 COURSES)
     Route: 048
     Dates: end: 1998
  3. CYCLOPHOSPHAMIDE [Suspect]
     Indication: B-CELL LYMPHOMA
     Dosage: 1400 MG, CYCLIC (7 COURSES)
     Dates: end: 1998
  4. VINCRISTINE SULFATE [Suspect]
     Indication: B-CELL LYMPHOMA
     Dosage: 2 MG, CYCLIC (7 COURSES)
     Dates: end: 1998
  5. PREDNISOLONE [Suspect]
     Indication: B-CELL LYMPHOMA
     Dosage: 110 MG, CYCLIC (7 COURSES)
     Dates: end: 1998

REACTIONS (1)
  - Sweat gland tumour [Unknown]
